FAERS Safety Report 11830688 (Version 1)
Quarter: 2015Q4

REPORT INFORMATION
  Report Type: Spontaneous
  Country: GB (occurrence: GB)
  Receive Date: 20151214
  Receipt Date: 20151214
  Transmission Date: 20160305
  Serious: Yes (Other)
  Sender: FDA-Public Use
  Company Number: GB-AUROBINDO-AUR-APL-2015-11303

PATIENT
  Age: 32 Year
  Sex: Female

DRUGS (2)
  1. CERAZETTE                          /00754001/ [Interacting]
     Active Substance: DESOGESTREL
     Indication: ORAL CONTRACEPTION
     Dosage: 75 ?G, UNK
     Route: 048
     Dates: start: 20150803
  2. LAMOTRIGINE. [Suspect]
     Active Substance: LAMOTRIGINE
     Indication: EPILEPSY
     Dosage: 300 MG, UNK
     Route: 048
     Dates: start: 20090101

REACTIONS (2)
  - Pregnancy on oral contraceptive [Unknown]
  - Drug interaction [Unknown]
